FAERS Safety Report 4888447-0 (Version None)
Quarter: 2006Q1

REPORT INFORMATION
  Report Type: 
  Country: None (occurrence: None)
  Receive Date: 20060119
  Receipt Date: 20060119
  Transmission Date: 20060701
  Serious: Yes (Hospitalization)
  Sender: FDA-Public Use
  Company Number: None

PATIENT
  Age: 63 Year
  Sex: Male
  Weight: 117.9352 kg

DRUGS (2)
  1. GLYBURIDE AND METFORMIN HCL [Suspect]
     Indication: DIABETES MELLITUS
     Dosage: 2 TABLETS BID
     Dates: start: 20050318, end: 20051002
  2. PIOGLITAZONE HCL [Suspect]
     Dosage: ONE Q DAY

REACTIONS (6)
  - BLOOD GLUCOSE DECREASED [None]
  - CORONARY ARTERY SURGERY [None]
  - FATIGUE [None]
  - HYPERHIDROSIS [None]
  - POST PROCEDURAL COMPLICATION [None]
  - TREMOR [None]
